FAERS Safety Report 7929090-6 (Version None)
Quarter: 2011Q4

REPORT INFORMATION
  Report Type: 
  Country: None (occurrence: None)
  Receive Date: 20111119
  Receipt Date: 20111110
  Transmission Date: 20120403
  Serious: Yes (Hospitalization)
  Sender: FDA-Public Use
  Company Number: DE-ASTRAZENECA-2011SE68490

PATIENT
  Age: 25721 Day
  Sex: Female
  Weight: 75 kg

DRUGS (4)
  1. PANTOPRAZOLE [Concomitant]
  2. BRILIQUE [Suspect]
     Indication: ACUTE CORONARY SYNDROME
     Route: 048
     Dates: start: 20111026, end: 20111027
  3. METOPROLOL TARTRATE [Concomitant]
     Route: 048
  4. ASPIRIN [Concomitant]

REACTIONS (1)
  - LARYNGEAL OEDEMA [None]
